FAERS Safety Report 5429868-7 (Version None)
Quarter: 2007Q3

REPORT INFORMATION
  Report Type: 
  Country: None (occurrence: None)
  Receive Date: 20070827
  Receipt Date: 20070809
  Transmission Date: 20080115
  Serious: Yes (Death, Hospitalization)
  Sender: FDA-Public Use
  Company Number: 2006RR-01711

PATIENT
  Age: 85 Year
  Sex: Female

DRUGS (6)
  1. CLARITHROMYCIN [Suspect]
     Indication: PNEUMONIA STREPTOCOCCAL
     Dosage: 500 MG, BID, ORAL
     Route: 048
  2. GATIFLOXACIN [Concomitant]
  3. PENICILLIN [Concomitant]
  4. CLINDAMYCIN (CLINDAMYCIN) [Concomitant]
  5. AMIODARONE HCL [Concomitant]
  6. VANCOMYCIN [Concomitant]

REACTIONS (8)
  - ACUTE RESPIRATORY DISTRESS SYNDROME [None]
  - ATRIAL FIBRILLATION [None]
  - DRUG INEFFECTIVE [None]
  - GENERAL PHYSICAL HEALTH DETERIORATION [None]
  - HYPOTENSION [None]
  - PATHOGEN RESISTANCE [None]
  - RENAL FAILURE [None]
  - STREPTOCOCCAL SEPSIS [None]
